FAERS Safety Report 4445605-7 (Version None)
Quarter: 2004Q3

REPORT INFORMATION
  Report Type: 
  Country: None (occurrence: None)
  Receive Date: 20040902
  Receipt Date: 20040830
  Transmission Date: 20050211
  Serious: Yes (Hospitalization)
  Sender: FDA-Public Use
  Company Number: F01200402509

PATIENT
  Age: 75 Year
  Sex: Male

DRUGS (1)
  1. ALFUZOSIN - TABLET PR - 10 MG [Suspect]
     Indication: BENIGN PROSTATIC HYPERPLASIA
     Dosage: 10 MG OD; ORAL
     Route: 048
     Dates: start: 20010214

REACTIONS (3)
  - ANGINA PECTORIS [None]
  - AORTIC STENOSIS [None]
  - DECREASED ACTIVITY [None]
